FAERS Safety Report 6290614-9 (Version None)
Quarter: 2009Q3

REPORT INFORMATION
  Report Type: 
  Country: None (occurrence: None)
  Receive Date: 20090730
  Receipt Date: 20090723
  Transmission Date: 20100115
  Serious: Yes (Other)
  Sender: FDA-Public Use
  Company Number: JP-JNJFOC-20090709238

PATIENT
  Age: 33 Year
  Sex: Male

DRUGS (1)
  1. CRAVIT [Suspect]
     Indication: DRUG USE FOR UNKNOWN INDICATION
     Route: 048

REACTIONS (2)
  - ANAPHYLACTIC SHOCK [None]
  - INTENTIONAL DRUG MISUSE [None]
